FAERS Safety Report 24344814 (Version 1)
Quarter: 2024Q3

REPORT INFORMATION
  Report Type: Spontaneous
  Country: US (occurrence: None)
  Receive Date: 20240919
  Receipt Date: 20240919
  Transmission Date: 20241017
  Serious: Yes (Disabling)
  Sender: Public
  Company Number: None

PATIENT
  Age: 32 Year
  Sex: Female
  Weight: 62.1 kg

DRUGS (2)
  1. LEVONORGESTREL [Suspect]
     Active Substance: LEVONORGESTREL
     Indication: Contraception
     Dosage: EXACTLY ONCE ORAL
     Route: 048
     Dates: start: 20240413, end: 20240413
  2. VITAMINS [Concomitant]
     Active Substance: VITAMINS

REACTIONS (8)
  - Breast enlargement [None]
  - Nipple enlargement [None]
  - Mood altered [None]
  - Abdominal distension [None]
  - Swelling face [None]
  - Libido disorder [None]
  - Emotional distress [None]
  - Mental disorder [None]

NARRATIVE: CASE EVENT DATE: 20240413
